FAERS Safety Report 15845483 (Version 1)
Quarter: 2019Q1

REPORT INFORMATION
  Report Type: Spontaneous
  Country: US (occurrence: US)
  Receive Date: 20190119
  Receipt Date: 20190119
  Transmission Date: 20190417
  Serious: No
  Sender: FDA-Public Use
  Company Number: US-JNJFOC-20190108553

PATIENT

DRUGS (1)
  1. IMBRUVICA [Suspect]
     Active Substance: IBRUTINIB
     Indication: PRODUCT USED FOR UNKNOWN INDICATION
     Route: 065

REACTIONS (10)
  - Nail disorder [Unknown]
  - Alopecia [Unknown]
  - Contusion [Unknown]
  - Dry skin [Unknown]
  - Thirst [Unknown]
  - Muscle spasms [Unknown]
  - Haemorrhagic diathesis [Unknown]
  - Stomatitis [Unknown]
  - Paraesthesia [Unknown]
  - Nasal ulcer [Unknown]
